FAERS Safety Report 8379064-9 (Version None)
Quarter: 2012Q2

REPORT INFORMATION
  Report Type: 
  Country: None (occurrence: None)
  Receive Date: 20120522
  Receipt Date: 20120522
  Transmission Date: 20120825
  Serious: Yes (Other)
  Sender: FDA-Public Use
  Company Number: None

PATIENT
  Age: 42 Year
  Sex: Female
  Weight: 101.1521 kg

DRUGS (1)
  1. AZITHROMYCIN [Suspect]
     Indication: COUGH
     Dosage: 2 ON DAY ONE PO
     Route: 048
     Dates: start: 20120410

REACTIONS (3)
  - TONGUE PRURITUS [None]
  - SWOLLEN TONGUE [None]
  - DYSPHAGIA [None]
